FAERS Safety Report 9377126 (Version 1)
Quarter: 2013Q3

REPORT INFORMATION
  Report Type: Spontaneous
  Country: US (occurrence: US)
  Receive Date: 20130701
  Receipt Date: 20130701
  Transmission Date: 20140515
  Serious: Yes (Other)
  Sender: FDA-Public Use
  Company Number: US-PFIZER INC-2013190584

PATIENT
  Age: 71 Year
  Sex: Male
  Weight: 83.9 kg

DRUGS (5)
  1. VIAGRA [Suspect]
     Indication: ERECTILE DYSFUNCTION
     Dosage: 100 MG, AS NEEDED
     Route: 048
     Dates: end: 201306
  2. SUCRALFATE [Interacting]
     Indication: CHEST PAIN
     Dosage: UNK, 4X/DAY
     Dates: start: 2013
  3. SUCRALFATE [Interacting]
     Indication: GASTROOESOPHAGEAL REFLUX DISEASE
  4. LISINOPRIL [Concomitant]
     Indication: HYPERTENSION
     Dosage: 10MG HALF TABLET, 1X/DAY
     Route: 048
  5. HYDROCHLOROTHIAZIDE [Concomitant]
     Indication: HYPERTENSION
     Dosage: 25MG HALF TABLET , 1X/DAY
     Route: 048

REACTIONS (4)
  - Hearing impaired [Unknown]
  - Gastrooesophageal reflux disease [Unknown]
  - Drug interaction [Unknown]
  - Drug ineffective [Unknown]
